FAERS Safety Report 25985558 (Version 2)
Quarter: 2025Q4

REPORT INFORMATION
  Report Type: Spontaneous
  Country: EU (occurrence: EU)
  Receive Date: 20251101
  Receipt Date: 20251230
  Transmission Date: 20260117
  Serious: Yes (Life-Threatening, Hospitalization, Other)
  Sender: HETERO
  Company Number: EU-AMAROX PHARMA-AMR2025DE06401

PATIENT
  Age: 11 Year
  Sex: Male
  Weight: 35 kg

DRUGS (4)
  1. LEVETIRACETAM [Suspect]
     Active Substance: LEVETIRACETAM
     Indication: Seizure
     Dosage: 30 MILLIGRAM(30 MG/KG WAS ADMINISTERED OVER 30 MINUTES)
     Route: 042
  2. LEVETIRACETAM [Suspect]
     Active Substance: LEVETIRACETAM
     Dosage: 10 MILLIGRAM(10 MILLIGRAM PER KILOGRAM OVER 30 MINUTES)
     Route: 042
  3. LEVETIRACETAM [Suspect]
     Active Substance: LEVETIRACETAM
     Dosage: 20 MILLIGRAM, QD(20 MILLIGRAM PER KILOGRAM PER DAY IN 2 DIVIDED DOSES)
     Route: 065
  4. SODIUM CHLORIDE [Concomitant]
     Active Substance: SODIUM CHLORIDE
     Indication: Seizure
     Dosage: 0.9 PERCENT
     Route: 065

REACTIONS (1)
  - Metabolic acidosis [Recovered/Resolved]
